FAERS Safety Report 7441391-7 (Version None)
Quarter: 2011Q2

REPORT INFORMATION
  Report Type: 
  Country: None (occurrence: None)
  Receive Date: 20110418
  Receipt Date: 20110404
  Transmission Date: 20111010
  Serious: Yes (Hospitalization, Other)
  Sender: FDA-Public Use
  Company Number: US-JNJFOC-20110402566

PATIENT
  Age: 82 Year
  Sex: Male

DRUGS (3)
  1. DACOGEN [Suspect]
     Indication: CHRONIC MYELOMONOCYTIC LEUKAEMIA
     Dosage: FOR 5 DAYS INTRAVENOUS
     Route: 042
  2. ECULIZUMAB (ECULIZUMAB) UNKNOWN [Suspect]
     Indication: PAROXYSMAL NOCTURNAL HAEMOGLOBINURIA
     Dosage: 900 MG, 1 IN 2 WEEK, INTRAVENOUS; 900 MG, 1 IN 2 WEEK, INTRAVENOUS
     Route: 042
     Dates: end: 20110324
  3. ECULIZUMAB (ECULIZUMAB) UNKNOWN [Suspect]
     Indication: PAROXYSMAL NOCTURNAL HAEMOGLOBINURIA
     Dosage: 900 MG, 1 IN 2 WEEK, INTRAVENOUS; 900 MG, 1 IN 2 WEEK, INTRAVENOUS
     Route: 042
     Dates: start: 20101101

REACTIONS (6)
  - HYPOPHAGIA [None]
  - BLOOD COUNT ABNORMAL [None]
  - BLOOD COUNT [None]
  - FATIGUE [None]
  - BODY TEMPERATURE INCREASED [None]
  - WHITE BLOOD CELL COUNT INCREASED [None]
